FAERS Safety Report 19484239 (Version 1)
Quarter: 2021Q3

REPORT INFORMATION
  Report Type: Spontaneous
  Country: US (occurrence: US)
  Receive Date: 20210701
  Receipt Date: 20210701
  Transmission Date: 20211014
  Serious: No
  Sender: FDA-Public Use
  Company Number: US-TEVA-2021-US-1928358

PATIENT
  Age: 42 Year
  Sex: Female
  Weight: 90.8 kg

DRUGS (1)
  1. TAMOXIFEN [Suspect]
     Active Substance: TAMOXIFEN
     Route: 048
     Dates: start: 201409

REACTIONS (16)
  - Joint stiffness [Unknown]
  - Vaginal discharge [Unknown]
  - Paraesthesia [Recovered/Resolved]
  - Dry skin [Unknown]
  - Vulvovaginal dryness [Unknown]
  - Myalgia [Unknown]
  - Dyspareunia [Unknown]
  - Muscle spasms [Unknown]
  - Weight increased [Unknown]
  - Pain [Unknown]
  - Hypoaesthesia [Recovered/Resolved]
  - Disturbance in attention [Unknown]
  - Flatulence [Recovered/Resolved]
  - Hot flush [Unknown]
  - Nausea [Unknown]
  - Joint range of motion decreased [Unknown]

NARRATIVE: CASE EVENT DATE: 201409
